FAERS Safety Report 16398847 (Version 3)
Quarter: 2019Q4

REPORT INFORMATION
  Report Type: Spontaneous
  Country: DE (occurrence: DE)
  Receive Date: 20190606
  Receipt Date: 20191003
  Transmission Date: 20200122
  Serious: Yes (Hospitalization)
  Sender: FDA-Public Use
  Company Number: DE-ROCHE-2325961

PATIENT
  Age: 61 Year
  Sex: Male

DRUGS (2)
  1. 4-AMINOPYRIDINE [Concomitant]
     Active Substance: DALFAMPRIDINE
     Route: 065
  2. OCREVUS [Suspect]
     Active Substance: OCRELIZUMAB
     Indication: PROGRESSIVE MULTIPLE SCLEROSIS
     Route: 048
     Dates: start: 20180901

REACTIONS (1)
  - Herpes simplex encephalitis [Recovered/Resolved]
